FAERS Safety Report 24927634 (Version 1)
Quarter: 2025Q1

REPORT INFORMATION
  Report Type: Report from Study
  Country: CA (occurrence: None)
  Receive Date: 20250205
  Receipt Date: 20250205
  Transmission Date: 20250409
  Serious: Yes (Hospitalization)
  Sender: ORION
  Company Number: CA-PFIZER INC-202101063965

PATIENT
  Sex: Female

DRUGS (16)
  1. METHOTREXATE [Suspect]
     Active Substance: METHOTREXATE
     Indication: Product used for unknown indication
  2. RITUXIMAB [Suspect]
     Active Substance: RITUXIMAB
     Indication: Rheumatoid arthritis
  3. RITUXIMAB [Suspect]
     Active Substance: RITUXIMAB
  4. PREDNISONE [Suspect]
     Active Substance: PREDNISONE
     Indication: Product used for unknown indication
  5. BENADRYL [Concomitant]
     Active Substance: DIPHENHYDRAMINE HYDROCHLORIDE
  6. DESOXIMETASONE [Concomitant]
     Active Substance: DESOXIMETASONE
  7. DICLOFENAC [Concomitant]
     Active Substance: DICLOFENAC
  8. DILAUDID [Concomitant]
     Active Substance: HYDROMORPHONE HYDROCHLORIDE
  9. HYDROMORPHONE [Concomitant]
     Active Substance: HYDROMORPHONE
  10. LYRICA [Concomitant]
     Active Substance: PREGABALIN
     Dosage: 2 EVERY 1 DAYS
  11. LYRICA [Concomitant]
     Active Substance: PREGABALIN
     Dosage: 2 EVERY 1 DAYS
  12. SOLU-MEDROL [Concomitant]
     Active Substance: METHYLPREDNISOLONE SODIUM SUCCINATE
  13. TYLENOL [Concomitant]
     Active Substance: ACETAMINOPHEN
  14. ZINC [Concomitant]
     Active Substance: ZINC
  15. AMOXICILLIN [Concomitant]
     Active Substance: AMOXICILLIN
  16. METHYLPREDNISOLONE SODIUM SUCCINATE [Concomitant]
     Active Substance: METHYLPREDNISOLONE SODIUM SUCCINATE

REACTIONS (5)
  - Gingivitis [Unknown]
  - Tooth infection [Unknown]
  - Arthralgia [Unknown]
  - Infected skin ulcer [Unknown]
  - Ulcer [Unknown]
